FAERS Safety Report 9525667 (Version 1)
Quarter: 2013Q1

REPORT INFORMATION
  Report Type: Spontaneous
  Country: US (occurrence: None)
  Receive Date: 20130314
  Receipt Date: 20130314
  Transmission Date: 20140127
  Serious: No
  Sender: FDA-Public Use
  Company Number: 1212USA005405

PATIENT
  Sex: 0

DRUGS (3)
  1. VICTRELIS [Suspect]
     Indication: HEPATITIS C
     Route: 048
     Dates: start: 20121210
  2. PEGASYS [Suspect]
     Indication: HEPATITIS C
  3. RIBAPAK (RIBAVIRIN) [Suspect]
     Indication: HEPATITIS C

REACTIONS (9)
  - Feeling cold [None]
  - Neck pain [None]
  - Back pain [None]
  - Arthralgia [None]
  - Depressed mood [None]
  - Fatigue [None]
  - Bradyphrenia [None]
  - Chills [None]
  - Dry throat [None]
